FAERS Safety Report 8798694 (Version 1)
Quarter: 2012Q4

REPORT INFORMATION
  Report Type: Report from Study
  Country: JP (occurrence: JP)
  Receive Date: 20120920
  Receipt Date: 20120920
  Transmission Date: 20130627
  Serious: Yes (Hospitalization, Other)
  Sender: FDA-Public Use
  Company Number: JP-ROCHE-1095018

PATIENT
  Age: 78 Year
  Sex: Female
  Weight: 39 kg

DRUGS (7)
  1. PEGASYS [Suspect]
     Indication: HEPATIC CIRRHOSIS
     Route: 058
     Dates: start: 20111112, end: 20111205
  2. PEGASYS [Suspect]
     Indication: HEPATIC CIRRHOSIS
     Dosage: Infusion rate decreased
     Route: 058
     Dates: start: 20111212, end: 20120507
  3. COPEGUS [Suspect]
     Indication: HEPATIC CIRRHOSIS
     Route: 048
     Dates: start: 20111121, end: 20111225
  4. COPEGUS [Suspect]
     Indication: HEPATIC CIRRHOSIS
     Route: 048
     Dates: start: 20111226, end: 20120219
  5. COPEGUS [Suspect]
     Indication: HEPATIC CIRRHOSIS
     Dosage: Decreased
     Route: 048
     Dates: start: 20120220, end: 20120509
  6. LOXONIN [Concomitant]
     Indication: PROPHYLAXIS
     Dosage: Single use (At the thermacogenesis). Infusion rate decreased
     Route: 048
     Dates: start: 20111128
  7. MUCOSTA [Concomitant]
     Indication: PROPHYLAXIS
     Dosage: Single use (At the thermacogenesis). Infusion rate decreased
     Route: 048
     Dates: start: 20111128

REACTIONS (6)
  - Platelet count decreased [Not Recovered/Not Resolved]
  - Haemoglobin decreased [Not Recovered/Not Resolved]
  - Gastritis [Not Recovered/Not Resolved]
  - Haemorrhage intracranial [Recovered/Resolved]
  - Fall [Unknown]
  - Anaemia [Unknown]
